FAERS Safety Report 17415211 (Version 1)
Quarter: 2020Q1

REPORT INFORMATION
  Report Type: Spontaneous
  Country: DE (occurrence: DE)
  Receive Date: 20200213
  Receipt Date: 20200213
  Transmission Date: 20200409
  Serious: Yes (Other)
  Sender: FDA-Public Use
  Company Number: DE-ASTRAZENECA-2020SE21952

PATIENT
  Sex: Male

DRUGS (3)
  1. ZOLEDRONAT [Concomitant]
     Active Substance: ZOLEDRONIC ACID
  2. CALCIUM [Concomitant]
     Active Substance: CALCIUM
  3. OSIMERTINIB. [Suspect]
     Active Substance: OSIMERTINIB
     Route: 048
     Dates: start: 20190807

REACTIONS (3)
  - Sinus disorder [Unknown]
  - Metastases to bone [Unknown]
  - Metastases to lymph nodes [Unknown]
